FAERS Safety Report 7911668 (Version 4)
Quarter: 2013Q3

REPORT INFORMATION
  Report Type: Spontaneous
  Country: US (occurrence: US)
  Receive Date: 20110422
  Receipt Date: 20130821
  Transmission Date: 20140515
  Serious: Yes (Hospitalization)
  Sender: FDA-Public Use
  Company Number: US-ALLERGAN-1105562US

PATIENT
  Age: 40 Year
  Sex: Female
  Weight: 58.96 kg

DRUGS (5)
  1. BOTOX [Suspect]
     Indication: BACK PAIN
     Dosage: 100 UNITS, SINGLE
     Route: 030
     Dates: start: 20101012, end: 20101012
  2. BOTOX [Suspect]
     Indication: MYOFASCIAL PAIN SYNDROME
  3. SYNTHROID [Concomitant]
     Indication: THYROID DISORDER
  4. RELPAX [Concomitant]
     Indication: HEADACHE
     Dosage: UNK
  5. CORGARD [Concomitant]
     Indication: HEADACHE

REACTIONS (20)
  - Disturbance in attention [Not Recovered/Not Resolved]
  - Influenza like illness [Not Recovered/Not Resolved]
  - Asthenia [Not Recovered/Not Resolved]
  - Muscular weakness [Not Recovered/Not Resolved]
  - Hyperaesthesia [Not Recovered/Not Resolved]
  - Feeling hot [Not Recovered/Not Resolved]
  - Anxiety [Not Recovered/Not Resolved]
  - Vertigo [Not Recovered/Not Resolved]
  - Neuropathy peripheral [Not Recovered/Not Resolved]
  - Tremor [Not Recovered/Not Resolved]
  - Cognitive disorder [Not Recovered/Not Resolved]
  - Photophobia [Not Recovered/Not Resolved]
  - Head discomfort [Not Recovered/Not Resolved]
  - Visual impairment [Not Recovered/Not Resolved]
  - Hyperaesthesia [Not Recovered/Not Resolved]
  - Malaise [Not Recovered/Not Resolved]
  - Malaise [Not Recovered/Not Resolved]
  - Myalgia [Not Recovered/Not Resolved]
  - Neuralgia [Not Recovered/Not Resolved]
  - Muscular weakness [Not Recovered/Not Resolved]
